FAERS Safety Report 15352859 (Version 4)
Quarter: 2019Q2

REPORT INFORMATION
  Report Type: Spontaneous
  Country: US (occurrence: US)
  Receive Date: 20180905
  Receipt Date: 20190416
  Transmission Date: 20190711
  Serious: No
  Sender: FDA-Public Use
  Company Number: US-IPSEN BIOPHARMACEUTICALS, INC.-2018-12765

PATIENT
  Age: 53 Year
  Sex: Female

DRUGS (3)
  1. SYNTHROID [Concomitant]
     Active Substance: LEVOTHYROXINE SODIUM
  2. JUVEDERM [Concomitant]
     Active Substance: HYALURONIC ACID
     Indication: SKIN COSMETIC PROCEDURE
     Dosage: 1 ML
     Dates: start: 20180509, end: 20180509
  3. DYSPORT [Suspect]
     Active Substance: ABOBOTULINUMTOXINA
     Indication: SKIN WRINKLING
     Dosage: 60 IU
     Route: 065
     Dates: start: 20180509, end: 20180509

REACTIONS (13)
  - Facial asymmetry [Recovered/Resolved]
  - Head discomfort [Not Recovered/Not Resolved]
  - Rhinorrhoea [Not Recovered/Not Resolved]
  - Vision blurred [Not Recovered/Not Resolved]
  - Dysgeusia [Recovered/Resolved]
  - Anxiety [Unknown]
  - Ageusia [Recovered/Resolved]
  - Facial paresis [Not Recovered/Not Resolved]
  - Skin tightness [Unknown]
  - Facial asymmetry [Not Recovered/Not Resolved]
  - Overdose [Unknown]
  - Headache [Not Recovered/Not Resolved]
  - Peripheral coldness [Not Recovered/Not Resolved]

NARRATIVE: CASE EVENT DATE: 20180509
